FAERS Safety Report 4436431-3 (Version None)
Quarter: 2004Q3

REPORT INFORMATION
  Report Type: 
  Country: None (occurrence: None)
  Receive Date: 20040830
  Receipt Date: 20040511
  Transmission Date: 20050211
  Serious: No
  Sender: FDA-Public Use
  Company Number: US-BRISTOL-MYERS SQUIBB COMPANY-12584850

PATIENT
  Age: 36 Year
  Sex: Female
  Weight: 68 kg

DRUGS (10)
  1. ABILIFY [Suspect]
     Indication: BIPOLAR DISORDER
     Route: 048
     Dates: start: 20040507
  2. ABILIFY [Suspect]
     Indication: POST-TRAUMATIC STRESS DISORDER
     Route: 048
     Dates: start: 20040507
  3. ABILIFY [Suspect]
     Indication: PARANOIA
     Route: 048
     Dates: start: 20040507
  4. KLONOPIN [Concomitant]
  5. EFFEXOR [Concomitant]
  6. TRAZODONE HCL [Concomitant]
  7. ESGIC [Concomitant]
  8. ROBAXIN [Concomitant]
  9. ZYRTEC [Concomitant]
  10. IBUPROFEN [Concomitant]

REACTIONS (4)
  - ANOREXIA [None]
  - BREAST TENDERNESS [None]
  - OLIGOMENORRHOEA [None]
  - VAGINAL HAEMORRHAGE [None]
